FAERS Safety Report 25400697 (Version 1)
Quarter: 2025Q2

REPORT INFORMATION
  Report Type: Spontaneous
  Country: US (occurrence: None)
  Receive Date: 20250604
  Receipt Date: 20250604
  Transmission Date: 20250717
  Serious: Yes (Hospitalization)
  Sender: FDA-CTU
  Company Number: None

PATIENT
  Age: 53 Year
  Sex: Female
  Weight: 118.3 kg

DRUGS (2)
  1. MYCOPHENOLIC ACID [Suspect]
     Active Substance: MYCOPHENOLIC ACID
  2. TACROLIMUS [Suspect]
     Active Substance: TACROLIMUS

REACTIONS (3)
  - Dialysis [None]
  - Therapy cessation [None]
  - Peripheral swelling [None]

NARRATIVE: CASE EVENT DATE: 20250529
